FAERS Safety Report 4779816-8 (Version None)
Quarter: 2005Q3

REPORT INFORMATION
  Report Type: 
  Country: None (occurrence: None)
  Receive Date: 20050927
  Receipt Date: 20050919
  Transmission Date: 20060218
  Serious: Yes (Hospitalization)
  Sender: FDA-Public Use
  Company Number: US-JNJFOC-20050904879

PATIENT
  Sex: Female
  Weight: 113.4 kg

DRUGS (1)
  1. DITROPAN XL [Suspect]
     Route: 048

REACTIONS (4)
  - EYE PAIN [None]
  - OEDEMA PERIPHERAL [None]
  - PULMONARY THROMBOSIS [None]
  - WEIGHT INCREASED [None]
